FAERS Safety Report 9222621 (Version 1)
Quarter: 2013Q1

REPORT INFORMATION
  Report Type: Spontaneous
  Country: US (occurrence: None)
  Receive Date: 20120914
  Receipt Date: 20120914
  Transmission Date: 20140127
  Serious: Yes (Hospitalization)
  Sender: FDA-Public Use
  Company Number: JPI-P-021843

PATIENT
  Age: 51 Year
  Sex: Male
  Weight: 86.18 kg

DRUGS (8)
  1. XYREM (500 MILLIGRAM/(S) /SQ. METER, SOLUTION) (SODIUM OXYBATE) [Suspect]
     Indication: NARCOLEPSY
     Route: 048
     Dates: start: 20120418
  2. XYREM (500 MILLIGRAM/(S) /SQ. METER, SOLUTION) (SODIUM OXYBATE) [Suspect]
     Indication: SOMNOLENCE
     Route: 048
     Dates: start: 20120418
  3. METOPROLOL [Concomitant]
  4. ATORVASTATIN CALCIUM [Concomitant]
  5. BUPROPION HYDROCHLORIDE [Concomitant]
  6. ASPIRIN [Concomitant]
  7. POTASSIUM [Concomitant]
  8. DEXLANSOPRAZOLE [Concomitant]

REACTIONS (2)
  - Muscle strain [None]
  - Chest pain [None]
